FAERS Safety Report 19809393 (Version 1)
Quarter: 2021Q3

REPORT INFORMATION
  Report Type: Spontaneous
  Country: US (occurrence: US)
  Receive Date: 20210909
  Receipt Date: 20210909
  Transmission Date: 20211014
  Serious: Yes (Life-Threatening, Hospitalization)
  Sender: FDA-Public Use
  Company Number: US-AJANTA PHARMA USA INC.-2118172

PATIENT
  Age: 37 Year
  Sex: Female
  Weight: 89.55 kg

DRUGS (7)
  1. MEDICAL CANNABIS [Concomitant]
     Active Substance: CANNABIS SATIVA SUBSP. INDICA TOP
  2. DULOXETINE (ANDA 208706) [Suspect]
     Active Substance: DULOXETINE
     Indication: MIGRAINE
     Dates: start: 20210218
  3. ZOFRAN [Concomitant]
     Active Substance: ONDANSETRON HYDROCHLORIDE
  4. PERCOCET [Concomitant]
     Active Substance: ACETAMINOPHEN\OXYCODONE HYDROCHLORIDE
  5. VALIUM [Concomitant]
     Active Substance: DIAZEPAM
  6. VITAMIN B12 [Concomitant]
     Active Substance: CYANOCOBALAMIN
  7. VITAMIN D3 [Concomitant]
     Active Substance: CHOLECALCIFEROL

REACTIONS (20)
  - Product dose omission issue [Recovered/Resolved]
  - Gastric disorder [Recovering/Resolving]
  - Weight decreased [Unknown]
  - Visual impairment [Recovered/Resolved]
  - Cerebral disorder [Not Recovered/Not Resolved]
  - Crying [Not Recovered/Not Resolved]
  - Bedridden [Unknown]
  - Suicidal ideation [Recovered/Resolved]
  - Mood swings [Not Recovered/Not Resolved]
  - Diarrhoea [Recovering/Resolving]
  - Migraine [Unknown]
  - Pain [Not Recovered/Not Resolved]
  - Withdrawal syndrome [Not Recovered/Not Resolved]
  - Anxiety [Not Recovered/Not Resolved]
  - Irritability [Not Recovered/Not Resolved]
  - Feeling abnormal [Not Recovered/Not Resolved]
  - Malaise [Recovered/Resolved]
  - Depression [Not Recovered/Not Resolved]
  - Nausea [Recovering/Resolving]
  - Vomiting [Recovered/Resolved]

NARRATIVE: CASE EVENT DATE: 20210218
